FAERS Safety Report 19533591 (Version 1)
Quarter: 2021Q3

REPORT INFORMATION
  Report Type: Spontaneous
  Country: CA (occurrence: CA)
  Receive Date: 20210713
  Receipt Date: 20210713
  Transmission Date: 20211014
  Serious: Yes (Other)
  Sender: FDA-Public Use
  Company Number: CA-SA-2021SA226817

PATIENT
  Age: 60 Year
  Sex: Male

DRUGS (13)
  1. FLUTICASONE FUROATE [Suspect]
     Active Substance: FLUTICASONE FUROATE
  2. MONTELUKAST SODIUM. [Suspect]
     Active Substance: MONTELUKAST SODIUM
  3. RANITIDINE. [Suspect]
     Active Substance: RANITIDINE
  4. BUDESONIDE/FORMOTEROL FUMARATE [Suspect]
     Active Substance: BUDESONIDE\FORMOTEROL FUMARATE
  5. PREDNISONE. [Suspect]
     Active Substance: PREDNISONE
  6. SALBUTAMOL SULFATE [Suspect]
     Active Substance: ALBUTEROL SULFATE
  7. IMMUNOGLOBULINS [IMMUNOGLOBULINS NOS] [Suspect]
     Active Substance: IMMUNE GLOBULIN NOS
  8. CICLESONIDE [Suspect]
     Active Substance: CICLESONIDE
  9. THEOPHYLLINE [Suspect]
     Active Substance: THEOPHYLLINE ANHYDROUS
  10. ALLOPURINOL. [Suspect]
     Active Substance: ALLOPURINOL
  11. FLUTICASONE FUROATE [Suspect]
     Active Substance: FLUTICASONE FUROATE
  12. SALBUTAMOL SULFATE [Suspect]
     Active Substance: ALBUTEROL SULFATE
  13. RABEPRAZOLE ZENTIVA [Suspect]
     Active Substance: RABEPRAZOLE

REACTIONS (11)
  - Wheezing [Recovered/Resolved]
  - Adverse drug reaction [Recovered/Resolved]
  - Eczema [Recovered/Resolved]
  - Therapeutic product effect incomplete [Recovered/Resolved]
  - Asthma [Recovered/Resolved]
  - Ocular discomfort [Recovered/Resolved]
  - Dermatitis allergic [Recovered/Resolved]
  - Eye pruritus [Recovered/Resolved]
  - Glaucoma [Recovered/Resolved]
  - Ocular hyperaemia [Recovered/Resolved]
  - Seasonal allergy [Recovered/Resolved]
